FAERS Safety Report 10494151 (Version 1)
Quarter: 2014Q4

REPORT INFORMATION
  Report Type: Spontaneous
  Country: FR (occurrence: FR)
  Receive Date: 20141003
  Receipt Date: 20141003
  Transmission Date: 20150528
  Serious: Yes (Other)
  Sender: FDA-Public Use
  Company Number: FR-BAYER-2014-143199

PATIENT
  Age: 75 Year
  Sex: Male

DRUGS (1)
  1. SORAFENIB (RAF KINASE INHIBITOR) [Suspect]
     Active Substance: SORAFENIB
     Indication: HEPATOCELLULAR CARCINOMA
     Dosage: UNK
     Dates: start: 2009

REACTIONS (5)
  - Elastosis perforans [Recovering/Resolving]
  - Cholestatic pruritus [None]
  - Hepatitis cholestatic [None]
  - Folliculitis [Recovering/Resolving]
  - Dermatosis [Recovering/Resolving]

NARRATIVE: CASE EVENT DATE: 2012
